FAERS Safety Report 7509445-4 (Version None)
Quarter: 2011Q2

REPORT INFORMATION
  Report Type: 
  Country: None (occurrence: None)
  Receive Date: 20110527
  Receipt Date: 20110513
  Transmission Date: 20111010
  Serious: Yes (Other)
  Sender: FDA-Public Use
  Company Number: US-BAYER-2011-042438

PATIENT
  Age: 72 Year
  Sex: Female
  Weight: 127 kg

DRUGS (9)
  1. AMLODIPINE W/BENAZEPRIL [Concomitant]
  2. ALLOPURINOL [Concomitant]
  3. FUROSEMIDE [Concomitant]
  4. ASPIRIN [Suspect]
     Dosage: 650 MG, ONCE, BOTTLE COUNT 125S
     Dates: start: 20110510, end: 20110510
  5. BAYER ASPIRIN SUGAR FREE LOW DOSE ENTERIC [Concomitant]
  6. FISH OIL [Concomitant]
  7. ASPIRIN [Suspect]
     Dosage: 650 MG, BID, BOTTLE COUNT 125S
     Dates: start: 20110511, end: 20110511
  8. CLONIDINE [Concomitant]
  9. SIMVASTATIN [Concomitant]

REACTIONS (2)
  - URTICARIA [None]
  - RASH [None]
